FAERS Safety Report 10710405 (Version 2)
Quarter: 2015Q1

REPORT INFORMATION
  Report Type: Spontaneous
  Country: US (occurrence: US)
  Receive Date: 20150114
  Receipt Date: 20150123
  Transmission Date: 20150721
  Serious: No
  Sender: FDA-Public Use
  Company Number: US-009507513-1501USA003618

PATIENT
  Age: 30 Year
  Sex: Female
  Weight: 114.74 kg

DRUGS (1)
  1. NEXPLANON [Suspect]
     Active Substance: ETONOGESTREL
     Dosage: ONE ROD/3 YEARS
     Route: 059
     Dates: start: 20130821, end: 20141113

REACTIONS (2)
  - Device breakage [Recovered/Resolved]
  - Weight increased [Unknown]
